FAERS Safety Report 25005224 (Version 1)
Quarter: 2025Q1

REPORT INFORMATION
  Report Type: Spontaneous
  Country: QA (occurrence: QA)
  Receive Date: 20250224
  Receipt Date: 20250224
  Transmission Date: 20250408
  Serious: Yes (Death)
  Sender: CHIESI
  Company Number: QA-CHIESI-2025CHF01264

PATIENT
  Age: 2 Month
  Sex: Female

DRUGS (1)
  1. BIRCH BARK\HERBALS [Suspect]
     Active Substance: BIRCH BARK\HERBALS
     Indication: Epidermolysis bullosa
     Route: 061

REACTIONS (2)
  - Disease complication [Fatal]
  - Off label use [Unknown]
